FAERS Safety Report 7459699-8 (Version None)
Quarter: 2011Q2

REPORT INFORMATION
  Report Type: 
  Country: None (occurrence: None)
  Receive Date: 20110505
  Receipt Date: 20110503
  Transmission Date: 20111010
  Serious: Yes (Hospitalization)
  Sender: FDA-Public Use
  Company Number: JP-PFIZER INC-2011077555

PATIENT
  Age: 71 Year
  Sex: Female

DRUGS (10)
  1. SUNITINIB MALATE [Suspect]
     Indication: RENAL CELL CARCINOMA
     Dosage: 25 MG, 1X/DAY
     Route: 048
     Dates: start: 20091016, end: 20110330
  2. AZUNOL [Concomitant]
     Dosage: UNK
  3. EPADEL [Concomitant]
     Dosage: UNK
  4. BONALFA [Concomitant]
     Dosage: UNK
  5. THYRADIN S [Concomitant]
     Dosage: UNK
  6. MYSER [Concomitant]
     Dosage: UNK
  7. OMEPRAZOLE [Concomitant]
     Dosage: UNK
  8. INSIDE [Concomitant]
     Dosage: UNK
  9. LOXONIN [Concomitant]
     Dosage: UNK
  10. CAPSAICIN/CAMPHOR/METHYL SALICYLATE [Concomitant]
     Dosage: UNK

REACTIONS (1)
  - HERPES ZOSTER [None]
